FAERS Safety Report 18532995 (Version 1)
Quarter: 2020Q4

REPORT INFORMATION
  Report Type: Spontaneous
  Country: FR (occurrence: FR)
  Receive Date: 20201123
  Receipt Date: 20201123
  Transmission Date: 20210114
  Serious: Yes (Hospitalization)
  Sender: FDA-Public Use
  Company Number: FR-BAUSCH-BL-2020-033127

PATIENT
  Age: 51 Year
  Sex: Male
  Weight: 67 kg

DRUGS (9)
  1. VALACICLOVIR [Concomitant]
     Active Substance: VALACYCLOVIR HYDROCHLORIDE
     Indication: PRODUCT USED FOR UNKNOWN INDICATION
  2. PRIMPERAN [Concomitant]
     Active Substance: METOCLOPRAMIDE HYDROCHLORIDE
     Indication: PRODUCT USED FOR UNKNOWN INDICATION
  3. ETOPOPHOS [Suspect]
     Active Substance: ETOPOSIDE PHOSPHATE
     Indication: LYMPHOMA
     Dosage: 181MG AT DAY 2, DAY 3, DAY 4, CYCLICAL
     Route: 042
     Dates: start: 20200806, end: 20200807
  4. IFOSFAMIDE EG [Suspect]
     Active Substance: IFOSFAMIDE
     Indication: LYMPHOMA
     Dosage: 2.71G AT DAY 2, DAY 3, DAY 4, CYCLICAL
     Route: 042
     Dates: start: 20200805, end: 20200807
  5. ALFUZOSIN HYDROCHLORIDE. [Concomitant]
     Active Substance: ALFUZOSIN HYDROCHLORIDE
     Indication: PRODUCT USED FOR UNKNOWN INDICATION
  6. TIORFAN [Concomitant]
     Active Substance: RACECADOTRIL
     Indication: PRODUCT USED FOR UNKNOWN INDICATION
  7. DEXAMETHASONE. [Suspect]
     Active Substance: DEXAMETHASONE
     Indication: LYMPHOMA
     Dosage: 40MG AT DAY 2, DAY 3, DAY 4, CYCLICAL
     Route: 042
     Dates: start: 20200805, end: 20200807
  8. GRANOCYTE [Concomitant]
     Active Substance: LENOGRASTIM
     Indication: PRODUCT USED FOR UNKNOWN INDICATION
  9. METHOTREXATE MYLAN [Suspect]
     Active Substance: METHOTREXATE SODIUM
     Indication: LYMPHOMA
     Dosage: IN TOTAL; 3620MG ON D1
     Route: 042
     Dates: start: 20200804, end: 20200831

REACTIONS (2)
  - Febrile bone marrow aplasia [Recovered/Resolved with Sequelae]
  - Pseudomonas infection [Recovered/Resolved with Sequelae]

NARRATIVE: CASE EVENT DATE: 20200814
